FAERS Safety Report 17186370 (Version 2)
Quarter: 2020Q1

REPORT INFORMATION
  Report Type: Spontaneous
  Country: US (occurrence: US)
  Receive Date: 20191220
  Receipt Date: 20200116
  Transmission Date: 20200409
  Serious: Yes (Hospitalization)
  Sender: FDA-Public Use
  Company Number: US-ASTRAZENECA-2019SF81748

PATIENT
  Age: 22967 Day
  Sex: Female
  Weight: 78 kg

DRUGS (2)
  1. CORTIZONE 10 [Concomitant]
     Active Substance: HYDROCORTISONE
     Indication: BURSITIS
  2. BYDUREON BCISE [Suspect]
     Active Substance: EXENATIDE
     Indication: TYPE 2 DIABETES MELLITUS
     Route: 058
     Dates: start: 201902

REACTIONS (7)
  - Immunodeficiency [Unknown]
  - Extremity necrosis [Unknown]
  - Localised infection [Recovered/Resolved]
  - Pain in extremity [Not Recovered/Not Resolved]
  - Device leakage [Unknown]
  - Product closure removal difficult [Unknown]
  - Weight decreased [Unknown]

NARRATIVE: CASE EVENT DATE: 20191107
